FAERS Safety Report 10236460 (Version 1)
Quarter: 2014Q2

REPORT INFORMATION
  Report Type: Other
  Country: PT (occurrence: PT)
  Receive Date: 20140613
  Receipt Date: 20140613
  Transmission Date: 20141212
  Serious: Yes (Hospitalization)
  Sender: FDA-Public Use
  Company Number: PT-BRISTOL-MYERS SQUIBB COMPANY-21022033

PATIENT
  Age: 36 Year
  Sex: Male

DRUGS (6)
  1. ATAZANAVIR [Suspect]
     Indication: HIV INFECTION
  2. RITONAVIR [Suspect]
     Indication: HIV INFECTION
  3. ZIDOVUDINE [Suspect]
     Indication: HIV INFECTION
  4. LAMIVUDINE [Suspect]
     Indication: HIV INFECTION
  5. TENOFOVIR [Suspect]
     Indication: HIV INFECTION
  6. EMTRICITABINE [Suspect]
     Indication: HIV INFECTION

REACTIONS (4)
  - Immune reconstitution inflammatory syndrome [Unknown]
  - Diabetic ketoacidosis [Unknown]
  - Type 1 diabetes mellitus [Unknown]
  - Basedow^s disease [Unknown]
